FAERS Safety Report 25343601 (Version 1)
Quarter: 2025Q2

REPORT INFORMATION
  Report Type: Spontaneous
  Country: US (occurrence: US)
  Receive Date: 20250521
  Receipt Date: 20250521
  Transmission Date: 20250716
  Serious: No
  Sender: COVIS PHARMA GMBH
  Company Number: US-AMAGP-2025COV00576

PATIENT
  Sex: Female

DRUGS (1)
  1. FERAHEME [Suspect]
     Active Substance: FERUMOXYTOL NON-STOICHIOMETRIC MAGNETITE
     Indication: Product used for unknown indication
     Route: 042

REACTIONS (2)
  - Dizziness [Unknown]
  - Palpitations [Unknown]
